FAERS Safety Report 5999943-7 (Version None)
Quarter: 2008Q4

REPORT INFORMATION
  Report Type: 
  Country: None (occurrence: None)
  Receive Date: 20081215
  Receipt Date: 20081212
  Transmission Date: 20090506
  Serious: Yes (Life-Threatening)
  Sender: FDA-Public Use
  Company Number: PHHY2008BR31652

PATIENT
  Age: 33 Year
  Sex: Female

DRUGS (1)
  1. TEGRETOL [Suspect]
     Dosage: TEN TABLETS
     Route: 048
     Dates: start: 20081212

REACTIONS (3)
  - DIZZINESS [None]
  - GASTRIC LAVAGE [None]
  - INTENTIONAL OVERDOSE [None]
